FAERS Safety Report 4961712-4 (Version None)
Quarter: 2006Q1

REPORT INFORMATION
  Report Type: 
  Country: None (occurrence: None)
  Receive Date: 20060329
  Receipt Date: 20060314
  Transmission Date: 20060701
  Serious: Yes (Hospitalization, Other)
  Sender: FDA-Public Use
  Company Number: GBWYE371607FEB06

PATIENT
  Age: 64 Year
  Sex: Female

DRUGS (6)
  1. EFFEXOR XR [Suspect]
     Dosage: ACCIDENTAL OVERDOSE ON 750MG DAILY (2 X 75MG IN MORNING AND 4 X 150MG AT NIGHT) ORAL
     Route: 048
     Dates: start: 20010808
  2. FLUANXOL (FLUPENTIXOL DIHYDROCHLORIDE) [Concomitant]
  3. BENDROFLUAZIDE (BENDROFLUMETHIAZIDE) [Concomitant]
  4. PRAVASTATIN [Concomitant]
  5. ASPIRIN [Concomitant]
  6. VENTOLINE INHALATOR (SALBUTAMOL) [Concomitant]

REACTIONS (4)
  - ACCIDENTAL OVERDOSE [None]
  - BLOOD PRESSURE INCREASED [None]
  - DRUG PRESCRIBING ERROR [None]
  - HEADACHE [None]
